FAERS Safety Report 14007370 (Version 3)
Quarter: 2018Q4

REPORT INFORMATION
  Report Type: Report from Study
  Country: JP (occurrence: JP)
  Receive Date: 20170925
  Receipt Date: 20181218
  Transmission Date: 20190204
  Serious: Yes (Hospitalization, Other)
  Sender: FDA-Public Use
  Company Number: PHJP2017JP028623

PATIENT
  Sex: Male

DRUGS (42)
  1. FARYDAK [Suspect]
     Active Substance: PANOBINOSTAT
     Dosage: 20 MG, QD
     Route: 048
     Dates: start: 20160323, end: 20160419
  2. FARYDAK [Suspect]
     Active Substance: PANOBINOSTAT
     Dosage: 20 MG, QD
     Route: 048
     Dates: start: 20160420, end: 20160509
  3. BORTEZOMIB. [Concomitant]
     Active Substance: BORTEZOMIB
     Indication: PLASMA CELL MYELOMA
     Dosage: 1.3 MG/M2, QW
     Route: 058
     Dates: start: 20160210, end: 20160301
  4. DEXAMETHASONE. [Concomitant]
     Active Substance: DEXAMETHASONE
     Indication: PLASMA CELL MYELOMA
     Dosage: UNK
     Route: 065
     Dates: start: 20160323, end: 20160419
  5. URIEF [Concomitant]
     Active Substance: SILODOSIN
     Indication: BLADDER DISORDER
     Dosage: 8 MG, UNK
     Route: 048
     Dates: end: 20160510
  6. SILECE [Concomitant]
     Active Substance: FLUNITRAZEPAM
     Indication: DELIRIUM
     Dosage: 1 MG, UNK
     Route: 048
  7. OMEPRAZOLE. [Concomitant]
     Active Substance: OMEPRAZOLE
     Indication: PROPHYLAXIS
     Dosage: 20 MG, UNK
     Route: 042
     Dates: start: 20160510, end: 20160524
  8. TAZOPIP [Concomitant]
     Active Substance: PIPERACETAZINE\TAZOBACTAM
     Indication: PROPHYLAXIS
     Dosage: 4.5 G, UNK
     Route: 042
     Dates: start: 20160516, end: 20160529
  9. TRAMCET [Concomitant]
     Active Substance: ACETAMINOPHEN\TRAMADOL
     Indication: PRODUCT USED FOR UNKNOWN INDICATION
     Dosage: 3 DF, UNK
     Route: 048
     Dates: end: 20160510
  10. LEVOFLOXACIN. [Concomitant]
     Active Substance: LEVOFLOXACIN
     Indication: PROPHYLAXIS
     Dosage: 750 MG, UNK
     Route: 048
     Dates: end: 20160510
  11. REFLEX [Concomitant]
     Active Substance: MIRTAZAPINE
     Indication: DELIRIUM
     Dosage: 30 MG, UNK
     Route: 048
     Dates: end: 20160510
  12. RISPERIDONE. [Concomitant]
     Active Substance: RISPERIDONE
     Indication: DELIRIUM
     Dosage: 1 MG, UNK
     Route: 048
     Dates: start: 20160510
  13. DEXAMETHASONE. [Concomitant]
     Active Substance: DEXAMETHASONE
     Dosage: UNK
     Route: 065
     Dates: start: 20160420, end: 20160509
  14. VICCLOX [Concomitant]
     Active Substance: ACYCLOVIR SODIUM
     Indication: PROPHYLAXIS
     Dosage: 250 MG, UNK
     Route: 041
     Dates: start: 20160510, end: 20160524
  15. BORTEZOMIB. [Concomitant]
     Active Substance: BORTEZOMIB
     Dosage: 1.3 MG/M2, QW
     Route: 058
     Dates: start: 20160302, end: 20160322
  16. DEXAMETHASONE. [Concomitant]
     Active Substance: DEXAMETHASONE
     Dosage: UNK
     Route: 065
     Dates: start: 20160510, end: 20160530
  17. ALFACALCIDOL [Concomitant]
     Active Substance: ALFACALCIDOL
     Indication: PROPHYLAXIS
     Dosage: 1 UG, UNK
     Route: 048
     Dates: end: 20160510
  18. SENNOSIDE [Concomitant]
     Active Substance: SENNOSIDES
     Indication: BLADDER DISORDER
     Dosage: 24 MG, UNK
     Route: 048
  19. MAGMITT [Concomitant]
     Active Substance: MAGNESIUM OXIDE
     Indication: BLADDER DISORDER
     Dosage: 1980 MG, UNK
     Route: 048
     Dates: end: 20160510
  20. UBRETID [Concomitant]
     Active Substance: DISTIGMINE BROMIDE
     Indication: PRODUCT USED FOR UNKNOWN INDICATION
     Dosage: 5 MG, UNK
     Route: 048
     Dates: end: 20160510
  21. YOKUKANSAN [Concomitant]
     Active Substance: HERBALS
     Indication: DELIRIUM
     Dosage: 5 G, UNK
     Route: 048
  22. MEILAX [Concomitant]
     Active Substance: ETHYL LOFLAZEPATE
     Indication: DELIRIUM
     Dosage: 2 MG, UNK
     Route: 048
     Dates: end: 20160510
  23. FARYDAK [Suspect]
     Active Substance: PANOBINOSTAT
     Indication: PLASMA CELL MYELOMA
     Dosage: 20 MG, QD (3 ADMINISTRATION PER CYCLE)
     Route: 048
     Dates: start: 20160210, end: 20160301
  24. BORTEZOMIB. [Concomitant]
     Active Substance: BORTEZOMIB
     Dosage: 1.3 MG/M2, QW
     Route: 058
     Dates: start: 20160323, end: 20160419
  25. BORTEZOMIB. [Concomitant]
     Active Substance: BORTEZOMIB
     Dosage: 1.3 MG/M2, QW
     Route: 058
     Dates: start: 20160510, end: 20160530
  26. LANSOPRAZOLE. [Concomitant]
     Active Substance: LANSOPRAZOLE
     Indication: PROPHYLAXIS
     Dosage: 15 MG, UNK
     Route: 048
     Dates: end: 20160510
  27. QUETIAPINE. [Concomitant]
     Active Substance: QUETIAPINE
     Indication: DELIRIUM
     Dosage: 50 MG, UNK
     Route: 048
     Dates: end: 20160510
  28. OMEPRAZOLE. [Concomitant]
     Active Substance: OMEPRAZOLE
     Dosage: 10 MG, UNK
     Route: 048
     Dates: start: 20160525
  29. SERENACE [Concomitant]
     Active Substance: HALOPERIDOL
     Indication: DELIRIUM
     Dosage: 5 MG, UNK
     Route: 042
     Dates: start: 20160527
  30. ELCATONIN [Concomitant]
     Active Substance: ELCATONIN
     Indication: PRODUCT USED FOR UNKNOWN INDICATION
     Dosage: 40 DF, UNK
     Route: 042
     Dates: start: 20160526
  31. FARYDAK [Suspect]
     Active Substance: PANOBINOSTAT
     Dosage: 20 MG, QD
     Route: 048
     Dates: start: 20160302, end: 20160322
  32. BORTEZOMIB. [Concomitant]
     Active Substance: BORTEZOMIB
     Dosage: 1.3 MG/M2, QW
     Route: 058
     Dates: start: 20160420, end: 20160509
  33. ACICLOVIR [Concomitant]
     Active Substance: ACYCLOVIR
     Indication: PROPHYLAXIS
     Dosage: 200 MG, UNK
     Route: 048
     Dates: end: 20160510
  34. ACICLOVIR [Concomitant]
     Active Substance: ACYCLOVIR
     Dosage: 200 MG, UNK
     Route: 048
     Dates: start: 20160525
  35. LORAZEPAM. [Concomitant]
     Active Substance: LORAZEPAM
     Indication: DELIRIUM
     Dosage: 1.5 MG, UNK
     Route: 048
  36. BUP-4 [Concomitant]
     Active Substance: PROPIVERINE
     Indication: PRODUCT USED FOR UNKNOWN INDICATION
     Dosage: 20 MG, UNK
     Route: 048
     Dates: end: 20160510
  37. LENADEX [Concomitant]
     Active Substance: DEXAMETHASONE ACETATE
     Indication: PRODUCT USED FOR UNKNOWN INDICATION
     Dosage: 20 MG, UNK
     Route: 048
     Dates: start: 20160330, end: 20160510
  38. CEFTRIAXONE. [Concomitant]
     Active Substance: CEFTRIAXONE
     Indication: PROPHYLAXIS
     Dosage: 1 G, UNK
     Route: 042
     Dates: start: 20160510
  39. FUNGUARD [Concomitant]
     Active Substance: MICAFUNGIN SODIUM
     Indication: PROPHYLAXIS
     Dosage: 150 MG, UNK
     Route: 042
     Dates: start: 20160511
  40. TETRAMIDE [Concomitant]
     Active Substance: MIANSERIN
     Indication: DELIRIUM
     Dosage: 20 MG, UNK
     Route: 048
     Dates: start: 20160510
  41. CLARITHROMYCIN. [Concomitant]
     Active Substance: CLARITHROMYCIN
     Indication: PRODUCT USED FOR UNKNOWN INDICATION
     Dosage: 400 MG, UNK
     Route: 048
     Dates: end: 20160510
  42. VANCOMYCIN [Concomitant]
     Active Substance: VANCOMYCIN
     Indication: PROPHYLAXIS
     Dosage: 0.5 G, UNK
     Route: 041
     Dates: start: 20160523, end: 20160527

REACTIONS (13)
  - Platelet count decreased [Not Recovered/Not Resolved]
  - White blood cell count decreased [Unknown]
  - Platelet count decreased [Recovered/Resolved]
  - Renal failure [Not Recovered/Not Resolved]
  - Plasma cell myeloma [Not Recovered/Not Resolved]
  - Musculoskeletal pain [Not Recovered/Not Resolved]
  - Hyperuricaemia [Not Recovered/Not Resolved]
  - Concomitant disease aggravated [Not Recovered/Not Resolved]
  - Neutrophil count decreased [Unknown]
  - Malignant neoplasm progression [Not Recovered/Not Resolved]
  - Cytopenia [Not Recovered/Not Resolved]
  - Haemoglobin decreased [Unknown]
  - Cardiac failure [Not Recovered/Not Resolved]

NARRATIVE: CASE EVENT DATE: 20160309
